FAERS Safety Report 4514107-1 (Version None)
Quarter: 2004Q4

REPORT INFORMATION
  Report Type: 
  Country: None (occurrence: None)
  Receive Date: 20041124
  Receipt Date: 20041110
  Transmission Date: 20050328
  Serious: Yes (Other)
  Sender: FDA-Public Use
  Company Number: 2004VX000902

PATIENT
  Age: 68 Year
  Sex: Female

DRUGS (3)
  1. FLUOROURACIL [Suspect]
     Dosage: 500MG; INTRAVENOUS
     Route: 042
     Dates: start: 20041021, end: 20041021
  2. CALCIUM LEVOFOLINATE [Concomitant]
  3. UFT [Concomitant]

REACTIONS (2)
  - DIARRHOEA [None]
  - PYREXIA [None]
